FAERS Safety Report 23844255 (Version 2)
Quarter: 2024Q2

REPORT INFORMATION
  Report Type: Spontaneous
  Country: FR (occurrence: None)
  Receive Date: 20240510
  Receipt Date: 20240527
  Transmission Date: 20240716
  Serious: Yes (Hospitalization)
  Sender: FDA-Public Use
  Company Number: 2024A108916

PATIENT
  Age: 61 Year
  Sex: Male

DRUGS (4)
  1. ESOMEPRAZOLE [Suspect]
     Active Substance: ESOMEPRAZOLE
     Indication: Prophylaxis against gastrointestinal ulcer
     Dosage: 1 DOSAGE FORM, 1/DAY
     Route: 048
     Dates: start: 20231220, end: 20240130
  2. BACTRIM [Suspect]
     Active Substance: SULFAMETHOXAZOLE\TRIMETHOPRIM
     Indication: Antifungal prophylaxis
     Dosage: 1 DOSAGE FORM, EVERY 2 DAYS
     Route: 048
     Dates: start: 20231130, end: 20240129
  3. KEPPRA [Suspect]
     Active Substance: LEVETIRACETAM
     Indication: Seizure
     Dosage: 500 MILLIGRAM, EVERY 12 HRS
     Route: 048
     Dates: start: 20231122, end: 20240129
  4. TEMODAL [Suspect]
     Active Substance: TEMOZOLOMIDE
     Indication: Glioblastoma
     Dosage: 1 DOSAGE FORM, 1/DAY
     Route: 048
     Dates: start: 20231220, end: 20240130

REACTIONS (1)
  - Lichenoid keratosis [Recovering/Resolving]

NARRATIVE: CASE EVENT DATE: 20240123
